FAERS Safety Report 15730959 (Version 4)
Quarter: 2019Q1

REPORT INFORMATION
  Report Type: Spontaneous
  Country: US (occurrence: US)
  Receive Date: 20181217
  Receipt Date: 20190110
  Transmission Date: 20190417
  Serious: Yes (Hospitalization)
  Sender: FDA-Public Use
  Company Number: US-ACTELION-A-US2018-183839

PATIENT
  Age: 44 Year
  Sex: Female
  Weight: 107.48 kg

DRUGS (12)
  1. OPSUMIT [Suspect]
     Active Substance: MACITENTAN
     Indication: PULMONARY ARTERIAL HYPERTENSION
     Dosage: 10 MG, QD
     Route: 048
     Dates: start: 20180726
  2. VELETRI [Suspect]
     Active Substance: EPOPROSTENOL
     Dosage: 11.4 NG/KG, PER MIN
     Route: 042
  3. SILDENAFIL. [Concomitant]
     Active Substance: SILDENAFIL
  4. FUROSEMIDE. [Concomitant]
     Active Substance: FUROSEMIDE
  5. VELETRI [Suspect]
     Active Substance: EPOPROSTENOL
     Indication: PULMONARY ARTERIAL HYPERTENSION
     Dosage: 29 NG/KG, PER MIN
     Route: 042
  6. VELETRI [Suspect]
     Active Substance: EPOPROSTENOL
     Dosage: 13.3 NG/KG, PER MIN
     Route: 042
  7. VELETRI [Suspect]
     Active Substance: EPOPROSTENOL
     Dosage: 8 NG/KG, PER MIN
     Route: 042
  8. ELIQUIS [Concomitant]
     Active Substance: APIXABAN
  9. OPSUMIT [Suspect]
     Active Substance: MACITENTAN
     Dosage: UNK
     Route: 048
     Dates: start: 201808
  10. VELETRI [Suspect]
     Active Substance: EPOPROSTENOL
     Dosage: 22.5 NG/KG, PER MIN
     Route: 042
  11. VELETRI [Suspect]
     Active Substance: EPOPROSTENOL
     Dosage: 18.8 NG/KG, PER MIN
     Route: 042
  12. WARFARIN [Concomitant]
     Active Substance: WARFARIN

REACTIONS (30)
  - Respiratory failure [Recovered/Resolved with Sequelae]
  - Diarrhoea [Unknown]
  - Lethargy [Unknown]
  - Headache [Unknown]
  - Nausea [Unknown]
  - Incorrect dose administered [Not Recovered/Not Resolved]
  - Oedema peripheral [Not Recovered/Not Resolved]
  - Pain in jaw [Unknown]
  - Renal failure [Unknown]
  - Fluid retention [Unknown]
  - Peripheral swelling [Not Recovered/Not Resolved]
  - Urine output decreased [Unknown]
  - Gait disturbance [Unknown]
  - Renal disorder [Unknown]
  - Flushing [Unknown]
  - Catheter site pruritus [Unknown]
  - Miliaria [Unknown]
  - Fatigue [Unknown]
  - Decreased appetite [Unknown]
  - Pulmonary hypertension [Unknown]
  - Hospitalisation [Unknown]
  - Swelling [Unknown]
  - Cellulitis [Recovered/Resolved]
  - Chest pain [Unknown]
  - Dyspnoea [Unknown]
  - Vomiting [Unknown]
  - Myalgia [Unknown]
  - Hypotension [Unknown]
  - Skin discomfort [Not Recovered/Not Resolved]
  - Device malfunction [Unknown]

NARRATIVE: CASE EVENT DATE: 201808
